FAERS Safety Report 25931688 (Version 1)
Quarter: 2025Q4

REPORT INFORMATION
  Report Type: Other
  Country: EU (occurrence: EU)
  Receive Date: 20251016
  Receipt Date: 20251016
  Transmission Date: 20260117
  Serious: Yes (Hospitalization)
  Sender: KOWA PHARM
  Company Number: None

PATIENT

DRUGS (3)
  1. PITAVASTATIN [Suspect]
     Active Substance: PITAVASTATIN
     Indication: Hypercholesterolaemia
     Dosage: 2 MG, QD (EVERY 24 HOURS)
     Route: 048
     Dates: start: 20250805, end: 20250824
  2. METHOTREXATE [Concomitant]
     Active Substance: METHOTREXATE
     Indication: Prophylaxis against graft versus host disease
     Route: 048
     Dates: start: 20250407
  3. TACROLIMUS [Concomitant]
     Active Substance: TACROLIMUS
     Indication: Prophylaxis against graft versus host disease
     Route: 048
     Dates: start: 20250407

REACTIONS (3)
  - Hepatic cytolysis [Recovering/Resolving]
  - Hyperbilirubinaemia [Recovering/Resolving]
  - Hypocoagulable state [Recovering/Resolving]

NARRATIVE: CASE EVENT DATE: 20250824
